FAERS Safety Report 16651365 (Version 2)
Quarter: 2019Q3

REPORT INFORMATION
  Report Type: Spontaneous
  Country: BR (occurrence: BR)
  Receive Date: 20190731
  Receipt Date: 20190805
  Transmission Date: 20191004
  Serious: Yes (Other)
  Sender: FDA-Public Use
  Company Number: BR-PFIZER INC-2019320000

PATIENT
  Age: 55 Year
  Sex: Female
  Weight: 64 kg

DRUGS (1)
  1. LYRICA [Suspect]
     Active Substance: PREGABALIN
     Indication: PAIN
     Dosage: 6 DF, DAILY (2 TABLETS IN THE MORNING, 2 TABLETS AT LUNCH AND 2 TABLETS AT NIGHT)
     Dates: end: 2019

REACTIONS (3)
  - Fall [Recovered/Resolved]
  - Overdose [Unknown]
  - Head injury [Recovered/Resolved]

NARRATIVE: CASE EVENT DATE: 2018
